FAERS Safety Report 10740020 (Version 1)
Quarter: 2015Q1

REPORT INFORMATION
  Report Type: Spontaneous
  Country: US (occurrence: US)
  Receive Date: 20150127
  Receipt Date: 20150127
  Transmission Date: 20150721
  Serious: Yes (Other)
  Sender: FDA-Public Use
  Company Number: US-JNJFOC-20150111594

PATIENT
  Age: 20 Year
  Sex: Female
  Weight: 103.01 kg

DRUGS (1)
  1. TYLENOL EXTRA STRENGTH [Suspect]
     Active Substance: ACETAMINOPHEN
     Indication: TOOTHACHE
     Route: 048
     Dates: start: 20090723, end: 20090723

REACTIONS (1)
  - Accidental overdose [Recovered/Resolved]

NARRATIVE: CASE EVENT DATE: 20090723
